APPROVED DRUG PRODUCT: MYLERAN
Active Ingredient: BUSULFAN
Strength: 2MG
Dosage Form/Route: TABLET;ORAL
Application: N009386 | Product #001
Applicant: WAYLIS THERAPEUTICS LLC
Approved: Approved Prior to Jan 1, 1982 | RLD: Yes | RS: Yes | Type: RX